FAERS Safety Report 19673245 (Version 2)
Quarter: 2022Q1

REPORT INFORMATION
  Report Type: Spontaneous
  Country: US (occurrence: US)
  Receive Date: 20210809
  Receipt Date: 20220304
  Transmission Date: 20220423
  Serious: No
  Sender: FDA-Public Use
  Company Number: US-LUPIN PHARMACEUTICALS INC.-2021-13776

PATIENT
  Sex: Male

DRUGS (2)
  1. ALBUTEROL SULFATE [Suspect]
     Active Substance: ALBUTEROL SULFATE
     Indication: Product used for unknown indication
     Dosage: UNK, PRN (AS NEEDED) (FIRST INHALER)
     Dates: start: 2021
  2. ALBUTEROL SULFATE [Suspect]
     Active Substance: ALBUTEROL SULFATE
     Dosage: UNK, PRN (AS NEEDED) (SECOND INHALER)
     Dates: start: 2021

REACTIONS (4)
  - Device delivery system issue [Unknown]
  - Product preparation error [Unknown]
  - Device issue [None]
  - No adverse event [Unknown]

NARRATIVE: CASE EVENT DATE: 20210101
